FAERS Safety Report 15851102 (Version 1)
Quarter: 2019Q1

REPORT INFORMATION
  Report Type: Spontaneous
  Country: PT (occurrence: PT)
  Receive Date: 20190122
  Receipt Date: 20190122
  Transmission Date: 20190417
  Serious: Yes (Life-Threatening, Hospitalization, Other)
  Sender: FDA-Public Use
  Company Number: PT-AUROBINDO-AUR-APL-2018-053429

PATIENT
  Age: 49 Year
  Sex: Male

DRUGS (3)
  1. HALOPERIDOL. [Suspect]
     Active Substance: HALOPERIDOL
     Indication: SCHIZOTYPAL PERSONALITY DISORDER
     Dosage: 100 MILLIGRAM, MONTH
     Route: 065
  2. QUETIAPINE FILM-COATED TABLET [Suspect]
     Active Substance: QUETIAPINE
     Indication: SCHIZOTYPAL PERSONALITY DISORDER
     Dosage: 100 MILLIGRAM, DAILY
     Route: 048
     Dates: end: 20150718
  3. CHLORPROMAZINE. [Suspect]
     Active Substance: CHLORPROMAZINE
     Indication: SCHIZOTYPAL PERSONALITY DISORDER
     Dosage: 25 MILLIGRAM, DAILY
     Route: 065

REACTIONS (10)
  - Neuroleptic malignant syndrome [Recovered/Resolved]
  - Speech disorder [Recovered/Resolved]
  - Delirium [Recovered/Resolved]
  - Nystagmus [Recovered/Resolved]
  - Tachycardia [Recovered/Resolved]
  - Insomnia [Recovered/Resolved]
  - Urinary incontinence [Recovered/Resolved]
  - Musculoskeletal stiffness [Recovering/Resolving]
  - Thrombocytopenia [Recovered/Resolved]
  - Leukocytosis [Recovered/Resolved]

NARRATIVE: CASE EVENT DATE: 20150717
